FAERS Safety Report 20001001 (Version 1)
Quarter: 2021Q4

REPORT INFORMATION
  Report Type: Spontaneous
  Country: US (occurrence: US)
  Receive Date: 20211027
  Receipt Date: 20211027
  Transmission Date: 20220303
  Serious: Yes (Death)
  Sender: FDA-Public Use
  Company Number: None

PATIENT
  Age: 70 Year
  Sex: Male
  Weight: 74.25 kg

DRUGS (1)
  1. METFORMIN HYDROCHLORIDE [Suspect]
     Active Substance: METFORMIN HYDROCHLORIDE
     Indication: Diabetes mellitus
     Dosage: ?          QUANTITY:1 TABLET(S);
     Route: 048
     Dates: start: 20110101, end: 20210125

REACTIONS (5)
  - Abdominal pain upper [None]
  - Swollen tongue [None]
  - Multiple organ dysfunction syndrome [None]
  - Lactic acidosis [None]
  - Feeling abnormal [None]

NARRATIVE: CASE EVENT DATE: 20210129
